FAERS Safety Report 21261679 (Version 1)
Quarter: 2022Q3

REPORT INFORMATION
  Report Type: Spontaneous
  Country: DE (occurrence: DE)
  Receive Date: 20220827
  Receipt Date: 20220827
  Transmission Date: 20221027
  Serious: Yes (Other)
  Sender: FDA-Public Use
  Company Number: None

PATIENT
  Age: 19 Year
  Sex: Male

DRUGS (1)
  1. ACETAMINOPHEN [Suspect]
     Active Substance: ACETAMINOPHEN
     Indication: Pyrexia
     Dosage: 4 TABLETS THROUGHOUT THE DAY
     Route: 065
     Dates: start: 20220803, end: 20220804

REACTIONS (3)
  - Swelling face [Not Recovered/Not Resolved]
  - Body temperature fluctuation [Unknown]
  - Drug ineffective [Unknown]

NARRATIVE: CASE EVENT DATE: 20220801
